FAERS Safety Report 5365422-3 (Version None)
Quarter: 2007Q2

REPORT INFORMATION
  Report Type: 
  Country: None (occurrence: None)
  Receive Date: 20070621
  Receipt Date: 20070613
  Transmission Date: 20071010
  Serious: Yes (Hospitalization, Other)
  Sender: FDA-Public Use
  Company Number: US-ELI_LILLY_AND_COMPANY-US200609002129

PATIENT
  Age: 37 Year
  Sex: Male
  Weight: 102.04 kg

DRUGS (2)
  1. ZYPREXA [Suspect]
     Indication: ANXIETY
     Dosage: 5 MG, UNKNOWN
     Route: 065
     Dates: start: 20020702, end: 20020813
  2. ZYPREXA [Suspect]
     Dosage: 10 MG, UNKNOWN
     Route: 065
     Dates: start: 20020813, end: 20030916

REACTIONS (4)
  - BLOOD CHOLESTEROL INCREASED [None]
  - PANCREATIC NECROSIS [None]
  - PANCREATITIS [None]
  - TRACHEOSTOMY [None]
